FAERS Safety Report 24325899 (Version 1)
Quarter: 2024Q3

REPORT INFORMATION
  Report Type: Spontaneous
  Country: IN (occurrence: IN)
  Receive Date: 20240917
  Receipt Date: 20240917
  Transmission Date: 20241017
  Serious: Yes (Hospitalization, Other)
  Sender: COLLEGIUM PHARMACEUTICAL
  Company Number: IN-COLLEGIUM PHARMACEUTICAL, INC.-20240900727

PATIENT

DRUGS (3)
  1. NUCYNTA [Suspect]
     Active Substance: TAPENTADOL HYDROCHLORIDE
     Indication: Substance use
     Dosage: 100 MILLIGRAM, QD (2-3 TABLETS)
     Route: 065
     Dates: start: 2022
  2. NUCYNTA [Suspect]
     Active Substance: TAPENTADOL HYDROCHLORIDE
     Dosage: 100 MILLIGRAM, QD (10 TABLETS)
     Route: 065
  3. TAPENTADOL [Suspect]
     Active Substance: TAPENTADOL
     Indication: Drug detoxification
     Dosage: 400 MILLIGRAM, UNKNOWN
     Route: 065

REACTIONS (2)
  - Dystonia [Recovered/Resolved]
  - Drug withdrawal syndrome [Recovering/Resolving]
